FAERS Safety Report 25044325 (Version 1)
Quarter: 2025Q1

REPORT INFORMATION
  Report Type: Report from Study
  Country: CA (occurrence: CA)
  Receive Date: 20250306
  Receipt Date: 20250306
  Transmission Date: 20250408
  Serious: Yes (Other)
  Sender: TAKEDA
  Company Number: CA-TAKEDA-2025TUS023064

PATIENT
  Sex: Female

DRUGS (2)
  1. VEDOLIZUMAB [Suspect]
     Active Substance: VEDOLIZUMAB
     Indication: Colitis ulcerative
  2. PENTASA [Concomitant]
     Active Substance: MESALAMINE

REACTIONS (7)
  - Haematochezia [Recovering/Resolving]
  - Gastrointestinal sounds abnormal [Recovering/Resolving]
  - Drug effect less than expected [Recovering/Resolving]
  - Abdominal pain [Recovering/Resolving]
  - Flatulence [Recovering/Resolving]
  - Abdominal distension [Recovering/Resolving]
  - Fatigue [Recovering/Resolving]
